FAERS Safety Report 8596005-X (Version None)
Quarter: 2012Q3

REPORT INFORMATION
  Report Type: 
  Country: None (occurrence: None)
  Receive Date: 20120815
  Receipt Date: 19960508
  Transmission Date: 20120928
  Serious: Yes (Other)
  Sender: FDA-Public Use
  Company Number: US-ROCHE-1101382

PATIENT
  Age: 42 Year
  Sex: Male

DRUGS (14)
  1. ACTIVASE [Suspect]
     Dosage: 15 MG IVP
     Route: 040
  2. ACTIVASE [Suspect]
     Dosage: 50 MG OVER 30 MINS.
  3. ACTIVASE [Suspect]
     Dosage: 35 MG OVER 60 MINS.
  4. ACTIVASE [Suspect]
     Dosage: 0.50 MG/KG OVER 60 MINS.
  5. ACTIVASE [Suspect]
     Dosage: 0.75 MG/KG OVER 30 MINS.
  6. BRETYLIUM [Concomitant]
  7. LIDOCAINE [Concomitant]
  8. ACTIVASE [Suspect]
     Indication: ACUTE MYOCARDIAL INFARCTION
     Dosage: 15 MG (30 ML)
     Route: 040
  9. STREPTOKINASE [Concomitant]
     Dosage: 1.5 MILLION UNITS IN 150 ML NS GIVEN OVER 60 MINS. SET PUMP AT 200.
  10. PRONESTYL [Concomitant]
  11. LOPRESSOR [Concomitant]
     Route: 048
  12. HEPARIN [Concomitant]
     Dosage: 5000 UNITS
     Route: 040
  13. LOPRESSOR [Concomitant]
     Route: 048
  14. HEPARIN [Concomitant]
     Dosage: 1000 UNITS
     Route: 042

REACTIONS (2)
  - GASTROINTESTINAL HAEMORRHAGE [None]
  - BLOOD CREATINE PHOSPHOKINASE INCREASED [None]
